FAERS Safety Report 8271991-6 (Version None)
Quarter: 2012Q2

REPORT INFORMATION
  Report Type: 
  Country: None (occurrence: None)
  Receive Date: 20120410
  Receipt Date: 20120402
  Transmission Date: 20120825
  Serious: Yes (Hospitalization)
  Sender: FDA-Public Use
  Company Number: US-BAYER-2012-022882

PATIENT
  Age: 39 Year
  Sex: Female
  Weight: 58.957 kg

DRUGS (5)
  1. CHANTIX [Concomitant]
     Dosage: 1 MG, QD
     Route: 048
  2. FLUCONAZOLE [Concomitant]
     Dosage: 150 MG,
     Route: 048
  3. SUMATRIPTAN [Concomitant]
     Indication: HEADACHE
     Dosage: 100 MG,
     Route: 048
  4. YAZ [Suspect]
     Dosage: UNK
     Route: 048
     Dates: start: 20080901, end: 20090201
  5. SYNTHROID [Concomitant]
     Dosage: 0.075 MG, QD
     Route: 048

REACTIONS (7)
  - INJURY [None]
  - GENERAL PHYSICAL HEALTH DETERIORATION [None]
  - DEEP VEIN THROMBOSIS [None]
  - PAIN [None]
  - ANXIETY [None]
  - PAIN IN EXTREMITY [None]
  - EMOTIONAL DISTRESS [None]
